FAERS Safety Report 5854011-X (Version None)
Quarter: 2008Q3

REPORT INFORMATION
  Report Type: 
  Country: None (occurrence: None)
  Receive Date: 20080822
  Receipt Date: 20080813
  Transmission Date: 20090109
  Serious: Yes (Death)
  Sender: FDA-Public Use
  Company Number: CA-ROCHE-552663

PATIENT
  Sex: Male

DRUGS (1)
  1. FUZEON [Suspect]
     Route: 058
     Dates: start: 20050125, end: 20071223

REACTIONS (1)
  - ACCIDENT [None]
